FAERS Safety Report 8174654-0 (Version None)
Quarter: 2012Q1

REPORT INFORMATION
  Report Type: 
  Country: None (occurrence: None)
  Receive Date: 20120229
  Receipt Date: 20120222
  Transmission Date: 20120608
  Serious: Yes (Other)
  Sender: FDA-Public Use
  Company Number: US-JNJFOC-20120212562

PATIENT
  Sex: Female
  Weight: 94.98 kg

DRUGS (11)
  1. FLEXERIL [Suspect]
     Indication: MUSCLE SPASMS
     Route: 048
     Dates: start: 20080101
  2. CHANTIX [Suspect]
     Indication: SMOKING CESSATION THERAPY
     Route: 048
     Dates: start: 20120130, end: 20120101
  3. LEVOTHYROXINE SODIUM [Suspect]
     Indication: THYROID DISORDER
     Route: 048
     Dates: start: 20060101
  4. FLEXERIL [Suspect]
     Indication: RETROPERITONEAL FIBROSIS
     Route: 048
     Dates: start: 20080101
  5. GABAPENTIN [Suspect]
     Indication: RETROPERITONEAL FIBROSIS
     Route: 065
     Dates: start: 20060101
  6. LEVOTHYROXINE SODIUM [Suspect]
     Indication: RETROPERITONEAL FIBROSIS
     Route: 048
     Dates: start: 20060101
  7. GABAPENTIN [Suspect]
     Indication: NERVE INJURY
     Route: 065
     Dates: start: 20060101
  8. CYMBALTA [Suspect]
     Indication: FIBROMYALGIA
     Route: 048
     Dates: start: 20080101
  9. ACETAMINOPHEN AND HYDROCODONE BITARTRATE [Suspect]
     Indication: PAIN
     Dosage: 500/10
     Route: 048
     Dates: start: 20060101
  10. CYMBALTA [Suspect]
     Indication: RETROPERITONEAL FIBROSIS
     Route: 048
     Dates: start: 20080101
  11. ACETAMINOPHEN AND HYDROCODONE BITARTRATE [Suspect]
     Indication: RETROPERITONEAL FIBROSIS
     Dosage: 500/10
     Route: 048
     Dates: start: 20060101

REACTIONS (3)
  - NAUSEA [None]
  - DISCOMFORT [None]
  - MEMORY IMPAIRMENT [None]
